FAERS Safety Report 5133225-0 (Version None)
Quarter: 2006Q4

REPORT INFORMATION
  Report Type: 
  Country: None (occurrence: None)
  Receive Date: 20061018
  Receipt Date: 20061012
  Transmission Date: 20070319
  Serious: Yes (Death, Life-Threatening, Hospitalization)
  Sender: FDA-Public Use
  Company Number: 06-0128FS

PATIENT
  Age: 67 Year
  Sex: Female

DRUGS (5)
  1. NITROFURANTOIN [Suspect]
     Indication: URINARY TRACT INFECTION
  2. PHENAZOPYRIDINE HCL TAB [Suspect]
     Indication: URINARY TRACT INFECTION
  3. CILAZAPRIL [Concomitant]
  4. SIMVASTATIN [Concomitant]
  5. 1-THYROXINE [Concomitant]

REACTIONS (6)
  - ACUTE HEPATIC FAILURE [None]
  - ARTERIOSCLEROSIS [None]
  - HEPATITIS FULMINANT [None]
  - LIVER TRANSPLANT [None]
  - PALLOR [None]
  - TRANSPLANT FAILURE [None]
